FAERS Safety Report 5531299-6 (Version None)
Quarter: 2007Q4

REPORT INFORMATION
  Report Type: 
  Country: None (occurrence: None)
  Receive Date: 20071128
  Receipt Date: 20071108
  Transmission Date: 20080405
  Serious: No
  Sender: FDA-Public Use
  Company Number: E2090-00336-SPO-JP

PATIENT
  Age: 57 Year
  Sex: Female

DRUGS (4)
  1. ZONISAMIDE [Suspect]
     Indication: STATUS EPILEPTICUS
  2. PHENOBARBITAL TAB [Suspect]
     Indication: STATUS EPILEPTICUS
  3. CARBAMAZEPINE [Suspect]
     Indication: STATUS EPILEPTICUS
  4. PHENYTOIN [Suspect]
     Indication: STATUS EPILEPTICUS

REACTIONS (1)
  - DRUG RASH WITH EOSINOPHILIA AND SYSTEMIC SYMPTOMS [None]
